FAERS Safety Report 16786590 (Version 1)
Quarter: 2019Q3

REPORT INFORMATION
  Report Type: Spontaneous
  Country: US (occurrence: US)
  Receive Date: 20190909
  Receipt Date: 20190909
  Transmission Date: 20191005
  Serious: No
  Sender: FDA-Public Use
  Company Number: US-UNIQUE PHARMACEUTICAL LABORATORIES-2019RIS00324

PATIENT
  Sex: Male

DRUGS (2)
  1. OXYBUTYNIN CHLORIDE. [Suspect]
     Active Substance: OXYBUTYNIN CHLORIDE
     Indication: BLADDER SPASM
     Dosage: 15 MG, 1X/DAY
     Route: 048
  2. LUPRON [Concomitant]
     Active Substance: LEUPROLIDE ACETATE

REACTIONS (4)
  - Bladder spasm [Not Recovered/Not Resolved]
  - Therapeutic product effect incomplete [Not Recovered/Not Resolved]
  - Dry mouth [Not Recovered/Not Resolved]
  - Product residue present [Unknown]

NARRATIVE: CASE EVENT DATE: 2019
